FAERS Safety Report 24917836 (Version 1)
Quarter: 2025Q1

REPORT INFORMATION
  Report Type: Spontaneous
  Country: US (occurrence: US)
  Receive Date: 20250203
  Receipt Date: 20250203
  Transmission Date: 20250409
  Serious: No
  Sender: ABBVIE
  Company Number: US-ABBVIE-6110783

PATIENT
  Age: 23 Year
  Sex: Female
  Weight: 53.07 kg

DRUGS (1)
  1. LILETTA [Suspect]
     Active Substance: LEVONORGESTREL
     Indication: Contraception
     Route: 015
     Dates: start: 20241205, end: 20250103

REACTIONS (1)
  - Device expulsion [Recovered/Resolved]

NARRATIVE: CASE EVENT DATE: 20241230
